FAERS Safety Report 5990338-9 (Version None)
Quarter: 2008Q4

REPORT INFORMATION
  Report Type: 
  Country: None (occurrence: None)
  Receive Date: 20081210
  Receipt Date: 20081126
  Transmission Date: 20090506
  Serious: Yes (Hospitalization)
  Sender: FDA-Public Use
  Company Number: 100#03#2008-05945

PATIENT
  Age: 61 Year
  Sex: Female

DRUGS (14)
  1. ALENDRONATE SODIUM [Suspect]
     Indication: OSTEOPOROSIS
     Dosage: 70 MG ONCE
     Dates: start: 20080930, end: 20081112
  2. TENOXICAM (TENOXICAM) [Suspect]
     Indication: SPINAL OSTEOARTHRITIS
     Dosage: 20 MG ONCE
     Dates: start: 20060214, end: 20081112
  3. ADCAL-D3  (CALCIUM CARBONATE, CHOLECALFIFEROL, CONCENTRATE, COLECALCIF [Concomitant]
  4. AMITRIPTYLINE HYDROCHLORIDE [Concomitant]
  5. BACLOFEN [Concomitant]
  6. BETAHISTINE (BETAHISTINE) [Concomitant]
  7. CO-CODAMOL (CODEINE PHOSTATE, PARACETAMOL) [Concomitant]
  8. DIAZEPAM [Concomitant]
  9. FERROUS SULPHATE (FERROUS SULPHATE) [Concomitant]
  10. FLUOXETINE [Concomitant]
  11. LANSOPRAZOLE [Concomitant]
  12. ACETAMINOPHEN [Concomitant]
  13. PROCHLORPERAZINE MALEATE [Concomitant]
  14. TRAMADOL HCL [Concomitant]

REACTIONS (3)
  - DUODENITIS [None]
  - GASTRIC ULCER [None]
  - GASTRITIS [None]
